FAERS Safety Report 22091361 (Version 1)
Quarter: 2023Q1

REPORT INFORMATION
  Report Type: Report from Study
  Country: US (occurrence: US)
  Receive Date: 20230314
  Receipt Date: 20230314
  Transmission Date: 20230418
  Serious: Yes (Other)
  Sender: FDA-Public Use
  Company Number: US-ABBVIE-4329684

PATIENT
  Sex: Male

DRUGS (1)
  1. VENCLEXTA [Suspect]
     Active Substance: VENETOCLAX
     Indication: Chronic lymphocytic leukaemia
     Route: 048
     Dates: start: 202302, end: 202303

REACTIONS (5)
  - Platelet transfusion [Unknown]
  - Haemoglobin decreased [Unknown]
  - Night sweats [Unknown]
  - Drug intolerance [Unknown]
  - Abdominal discomfort [Unknown]
